FAERS Safety Report 9414506 (Version 1)
Quarter: 2013Q3

REPORT INFORMATION
  Report Type: Spontaneous
  Country: FR (occurrence: FR)
  Receive Date: 20130723
  Receipt Date: 20130723
  Transmission Date: 20140515
  Serious: Yes (Hospitalization)
  Sender: FDA-Public Use
  Company Number: FR-ROCHE-1251678

PATIENT
  Age: 1 Month
  Sex: Male
  Weight: 4.09 kg

DRUGS (9)
  1. RIVOTRIL [Suspect]
     Indication: CONVULSION
     Dosage: STOPPED ON 20/MAY/2013, DECREASE OF DOSE AND AGAIN STOPPED ON 31 MAY 2013
     Route: 042
  2. RIVOTRIL [Suspect]
     Route: 042
     Dates: end: 20130621
  3. SABRIL [Suspect]
     Indication: CONVULSION
     Route: 048
     Dates: start: 20130523
  4. SABRIL [Suspect]
     Dosage: REDUCED DOSE ON DISCHARGE
     Route: 048
  5. SABRIL [Suspect]
     Route: 048
     Dates: start: 20130603
  6. MORPHINE CHLORHYDRATE [Suspect]
     Indication: CONVULSION
     Route: 042
     Dates: start: 20130514
  7. MIDAZOLAM HYDROCHLORIDE [Suspect]
     Indication: CONVULSION
     Route: 042
     Dates: end: 20130523
  8. PHENOBARBITAL [Concomitant]
     Route: 065
  9. PHENYTOINE [Concomitant]

REACTIONS (4)
  - Apnoea [Recovered/Resolved]
  - Bradycardia [Recovered/Resolved]
  - Hypotonia [Recovered/Resolved]
  - Somnolence [Recovered/Resolved]
